FAERS Safety Report 8889404 (Version 1)
Quarter: 2012Q4

REPORT INFORMATION
  Report Type: Spontaneous
  Country: US (occurrence: None)
  Receive Date: 20121002
  Receipt Date: 20121002
  Transmission Date: 20130627
  Serious: Yes (Hospitalization, Other)
  Sender: FDA-Public Use
  Company Number: RB-40459-2012

PATIENT
  Age: 57 Year
  Sex: Male

DRUGS (4)
  1. SUBOXONE [Suspect]
     Indication: DRUG DEPENDENCE
     Dosage: tapering 1/2 film per day; started at an unknown dose tapered to 4 mg
     Route: 060
  2. SUBOXONE [Suspect]
     Route: 060
     Dates: start: 2011
  3. METOPROLOL [Concomitant]
  4. CLONAZEPAM [Concomitant]

REACTIONS (5)
  - Wrong technique in drug usage process [None]
  - Drug withdrawal syndrome [None]
  - Anxiety [None]
  - Irritability [None]
  - Angina pectoris [None]
